FAERS Safety Report 16397909 (Version 2)
Quarter: 2019Q4

REPORT INFORMATION
  Report Type: Spontaneous
  Country: US (occurrence: US)
  Receive Date: 20190606
  Receipt Date: 20191016
  Transmission Date: 20200122
  Serious: Yes (Death, Other)
  Sender: FDA-Public Use
  Company Number: US-SUN PHARMACEUTICAL INDUSTRIES LTD-2019R1-209997

PATIENT
  Age: 54 Year
  Sex: Male

DRUGS (1)
  1. ACETAMINOPHEN. [Suspect]
     Active Substance: ACETAMINOPHEN
     Indication: PRODUCT USED FOR UNKNOWN INDICATION
     Dosage: UNK
     Route: 065

REACTIONS (7)
  - Hepatic enzyme increased [Not Recovered/Not Resolved]
  - Methaemoglobinaemia [Unknown]
  - Acidosis [Unknown]
  - Hyperlactacidaemia [Unknown]
  - Coagulopathy [Unknown]
  - Death [Fatal]
  - Pulseless electrical activity [Fatal]
